FAERS Safety Report 23293838 (Version 1)
Quarter: 2023Q4

REPORT INFORMATION
  Report Type: Spontaneous
  Country: CH (occurrence: CH)
  Receive Date: 20231213
  Receipt Date: 20231213
  Transmission Date: 20240110
  Serious: Yes (Hospitalization, Other)
  Sender: FDA-Public Use
  Company Number: CH-AMGEN-CHESP2023219450

PATIENT
  Age: 66 Year
  Sex: Female

DRUGS (15)
  1. PROLIA [Suspect]
     Active Substance: DENOSUMAB
     Indication: Product used for unknown indication
     Dosage: IN TOTAL
     Route: 058
     Dates: start: 20231017, end: 20231017
  2. VIMPAT [Suspect]
     Active Substance: LACOSAMIDE
     Indication: Epilepsy
     Dosage: THE EVENING
     Route: 065
     Dates: start: 202309, end: 20231023
  3. VIMPAT [Suspect]
     Active Substance: LACOSAMIDE
     Dosage: THE EVENING
     Route: 065
     Dates: start: 20231024
  4. UNSPECIFIED INGREDIENT [Suspect]
     Active Substance: UNSPECIFIED INGREDIENT
     Indication: Product used for unknown indication
     Dosage: 1000 MILLIGRAM
     Route: 048
     Dates: start: 20231017, end: 20231023
  5. CALCIUM CHLORIDE [Suspect]
     Active Substance: CALCIUM CHLORIDE
     Indication: Hypocalcaemia
     Dosage: IN TOTAL
     Route: 042
     Dates: start: 20231023, end: 20231023
  6. CALCIUM GLUCONATE [Suspect]
     Active Substance: CALCIUM GLUCONATE
     Indication: Hypocalcaemia
     Dosage: IN TOTAL
     Route: 042
     Dates: start: 20231024, end: 20231025
  7. MIRTAZAPINE [Suspect]
     Active Substance: MIRTAZAPINE
     Indication: Product used for unknown indication
     Dosage: UNK
     Route: 065
     Dates: start: 20231016
  8. PREGABALIN [Concomitant]
     Active Substance: PREGABALIN
     Route: 065
  9. CALCIPARINE [Concomitant]
     Active Substance: HEPARIN CALCIUM
     Dosage: INTRODUCED IN LATE SEPTEMBER 2023
     Route: 065
  10. DARBEPOETIN ALFA [Concomitant]
     Active Substance: DARBEPOETIN ALFA
     Dosage: UNK
     Route: 065
  11. FERINJECT [Concomitant]
     Active Substance: FERRIC CARBOXYMALTOSE
     Dosage: UNK
     Route: 065
  12. CHOLECALCIFEROL [Concomitant]
     Active Substance: CHOLECALCIFEROL
     Dosage: UNK
     Route: 065
  13. DIALVIT [Concomitant]
     Dosage: UNK
     Route: 065
  14. ACETAMINOPHEN [Concomitant]
     Active Substance: ACETAMINOPHEN
     Dosage: UNK UNK, AS NECESSARY
     Route: 065
  15. FRESUBIN [Concomitant]
     Active Substance: AMINO ACIDS\DEXTROSE\ELECTROLYTES NOS\SOYBEAN OIL\VITAMINS
     Dosage: UNK
     Route: 065

REACTIONS (7)
  - Hypocalcaemia [Recovered/Resolved]
  - Seizure [Recovered/Resolved]
  - Anticonvulsant drug level below therapeutic [Recovered/Resolved]
  - Extravasation [Recovering/Resolving]
  - Application site vesicles [Recovering/Resolving]
  - Administration site swelling [Recovering/Resolving]
  - Administration site erythema [Recovering/Resolving]

NARRATIVE: CASE EVENT DATE: 20231023
